FAERS Safety Report 4730677-2 (Version None)
Quarter: 2005Q3

REPORT INFORMATION
  Report Type: 
  Country: None (occurrence: None)
  Receive Date: 20050725
  Receipt Date: 20050228
  Transmission Date: 20060218
  Serious: No
  Sender: FDA-Public Use
  Company Number: USA050392042

PATIENT
  Age: 11 Year
  Sex: Female

DRUGS (1)
  1. STRATTERA [Suspect]
     Indication: ATTENTION DEFICIT/HYPERACTIVITY DISORDER
     Dates: start: 20040820, end: 20041201

REACTIONS (3)
  - MEMORY IMPAIRMENT [None]
  - MOOD SWINGS [None]
  - TIC [None]
